FAERS Safety Report 7577303-5 (Version None)
Quarter: 2011Q2

REPORT INFORMATION
  Report Type: 
  Country: None (occurrence: None)
  Receive Date: 20110628
  Receipt Date: 20110613
  Transmission Date: 20111010
  Serious: Yes (Hospitalization, Other)
  Sender: FDA-Public Use
  Company Number: US-BAYER-2010-001362

PATIENT
  Age: 23 Year
  Sex: Female
  Weight: 68 kg

DRUGS (7)
  1. EFFEXOR [Concomitant]
     Dosage: UNK
     Dates: start: 20080101
  2. IBUPROFEN [Concomitant]
     Dosage: UNK
     Dates: start: 20090922, end: 20091022
  3. ZOFRAN [Concomitant]
  4. AMOXICILLIN [Concomitant]
     Dosage: UNK
     Dates: start: 20080101
  5. YAZ [Suspect]
     Indication: CONTRACEPTION
     Dosage: UNK UNK, QD
     Route: 048
     Dates: start: 20081001, end: 20081120
  6. LOVENOX [Concomitant]
  7. COUMADIN [Concomitant]

REACTIONS (2)
  - PULMONARY EMBOLISM [None]
  - PNEUMONIA [None]
